FAERS Safety Report 9543709 (Version 1)
Quarter: 2013Q2

REPORT INFORMATION
  Report Type: Spontaneous
  Country: US (occurrence: None)
  Receive Date: 20130524
  Receipt Date: 20130524
  Transmission Date: 20140414
  Serious: No
  Sender: FDA-Public Use
  Company Number: PHEH2013US002567

PATIENT
  Age: 41 Year
  Sex: Female

DRUGS (1)
  1. GILENYA (FINGOLIMOD) CAPSULES, 0.5MG [Suspect]
     Indication: MULTIPLE SCLEROSIS
     Route: 048
     Dates: start: 20121214

REACTIONS (6)
  - Feeling abnormal [None]
  - Fatigue [None]
  - Influenza like illness [None]
  - Pain [None]
  - Headache [None]
  - Eye pain [None]
